FAERS Safety Report 8576400-5 (Version None)
Quarter: 2012Q3

REPORT INFORMATION
  Report Type: 
  Country: None (occurrence: None)
  Receive Date: 20120807
  Receipt Date: 20120802
  Transmission Date: 20120928
  Serious: Yes (Other)
  Sender: FDA-Public Use
  Company Number: CN-PFIZER INC-2012189374

PATIENT
  Age: 91 Year
  Sex: Male

DRUGS (1)
  1. CORDARONE [Suspect]
     Indication: EXTRASYSTOLES
     Dosage: 0.2 G, DAILY
     Route: 048
     Dates: start: 20080514, end: 20090910

REACTIONS (2)
  - PALPITATIONS [None]
  - CHEST DISCOMFORT [None]
